FAERS Safety Report 4585087-8 (Version None)
Quarter: 2005Q1

REPORT INFORMATION
  Report Type: 
  Country: None (occurrence: None)
  Receive Date: 20050217
  Receipt Date: 20041228
  Transmission Date: 20050727
  Serious: No
  Sender: FDA-Public Use
  Company Number: US-GLAXOSMITHKLINE-A0538556A

PATIENT
  Age: 56 Year
  Sex: Male

DRUGS (4)
  1. WELLBUTRIN XL [Suspect]
     Indication: DEPRESSION
     Dosage: 300MG PER DAY
     Route: 048
     Dates: start: 20030901, end: 20041227
  2. EFFEXOR [Concomitant]
  3. XANAX [Concomitant]
  4. ATACAND [Concomitant]

REACTIONS (2)
  - MUSCLE SPASMS [None]
  - MUSCLE TIGHTNESS [None]
